FAERS Safety Report 6191244-X (Version None)
Quarter: 2009Q2

REPORT INFORMATION
  Report Type: 
  Country: None (occurrence: None)
  Receive Date: 20090513
  Receipt Date: 20090513
  Transmission Date: 20091009
  Serious: Yes (Disabling)
  Sender: FDA-Public Use
  Company Number: None

PATIENT
  Sex: Male
  Weight: 104.3273 kg

DRUGS (1)
  1. CHANTIX [Suspect]
     Indication: TOBACCO USER
     Dosage: 1 TAB 2 X DAY  2 X A DAY 1MG.
     Dates: start: 20070701, end: 20070901

REACTIONS (2)
  - DRUG HYPERSENSITIVITY [None]
  - MACULAR DEGENERATION [None]
